FAERS Safety Report 7810770-8 (Version None)
Quarter: 2011Q4

REPORT INFORMATION
  Report Type: 
  Country: None (occurrence: None)
  Receive Date: 20111006
  Receipt Date: 20110920
  Transmission Date: 20120403
  Serious: Yes (Life-Threatening, Hospitalization)
  Sender: FDA-Public Use
  Company Number: 2011MA014168

PATIENT
  Age: 26 Year
  Sex: Female

DRUGS (2)
  1. BUPRENORPHINE [Suspect]
     Indication: DEPENDENCE
  2. LORAZEPAM [Suspect]
     Indication: ANXIETY
     Dosage: 1 MG, IV
     Route: 042

REACTIONS (5)
  - TACHYPNOEA [None]
  - HEART RATE INCREASED [None]
  - TACHYCARDIA [None]
  - PNEUMONIA [None]
  - ANXIETY [None]
